FAERS Safety Report 5716545-8 (Version None)
Quarter: 2008Q2

REPORT INFORMATION
  Report Type: 
  Country: None (occurrence: None)
  Receive Date: 20080424
  Receipt Date: 20080415
  Transmission Date: 20081010
  Serious: Yes (Other)
  Sender: FDA-Public Use
  Company Number: US-ELI_LILLY_AND_COMPANY-US200804004304

PATIENT
  Sex: Female

DRUGS (3)
  1. HUMALOG MIX 75/25 [Suspect]
     Indication: DIABETES MELLITUS
  2. HUMALOG MIX 75/25 [Suspect]
  3. SYNTHROID [Concomitant]
     Indication: THYROID DISORDER
     Dosage: 50 MG, UNK

REACTIONS (18)
  - BLOOD GLUCOSE DECREASED [None]
  - DECREASED APPETITE [None]
  - FEAR [None]
  - FIBROMYALGIA [None]
  - HYPERAESTHESIA [None]
  - HYPERHIDROSIS [None]
  - INJECTION SITE PAIN [None]
  - INTERVERTEBRAL DISC PROTRUSION [None]
  - MALAISE [None]
  - MEMORY IMPAIRMENT [None]
  - MOOD ALTERED [None]
  - MUSCULOSKELETAL DISCOMFORT [None]
  - NECK INJURY [None]
  - RENAL IMPAIRMENT [None]
  - ROAD TRAFFIC ACCIDENT [None]
  - THYROID DISORDER [None]
  - TREMOR [None]
  - WEIGHT LOSS POOR [None]
